FAERS Safety Report 12690356 (Version 1)
Quarter: 2016Q3

REPORT INFORMATION
  Report Type: Spontaneous
  Country: IT (occurrence: IT)
  Receive Date: 20160826
  Receipt Date: 20160826
  Transmission Date: 20161109
  Serious: Yes (Other)
  Sender: FDA-Public Use
  Company Number: PHHY2016IT113997

PATIENT
  Age: 3 Year
  Sex: Male

DRUGS (2)
  1. BUDESONIDE. [Suspect]
     Active Substance: BUDESONIDE
     Indication: ADENOIDAL HYPERTROPHY
     Route: 065
  2. BETAMETHASONE SODIUM PHOSPHATE [Concomitant]
     Active Substance: BETAMETHASONE SODIUM PHOSPHATE
     Indication: ADENOIDAL HYPERTROPHY
     Dosage: UNK
     Route: 048

REACTIONS (10)
  - Pyrexia [Unknown]
  - Product use issue [Unknown]
  - Pruritus [Recovered/Resolved]
  - Erythema multiforme [Unknown]
  - Rash erythematous [Recovered/Resolved]
  - Urticaria [Recovered/Resolved]
  - Skin exfoliation [Recovered/Resolved]
  - Dermatitis contact [Unknown]
  - Erythema multiforme [Recovered/Resolved]
  - Rash [Recovered/Resolved]
